FAERS Safety Report 8501443-7 (Version None)
Quarter: 2012Q3

REPORT INFORMATION
  Report Type: 
  Country: None (occurrence: None)
  Receive Date: 20120710
  Receipt Date: 20120702
  Transmission Date: 20120928
  Serious: Yes (Hospitalization)
  Sender: FDA-Public Use
  Company Number: US-ABBOTT-12P-163-0942465-00

PATIENT
  Sex: Male
  Weight: 93.07 kg

DRUGS (7)
  1. COUMADIN [Concomitant]
     Indication: PRODUCT USED FOR UNKNOWN INDICATION
     Dosage: ALTERNATE DAYS
  2. TRICOR [Suspect]
     Indication: BLOOD CHOLESTEROL
     Dates: start: 20040101
  3. COUMADIN [Concomitant]
     Indication: STENT PLACEMENT
  4. METOPROLOL SUCCINATE [Concomitant]
     Indication: HYPERTENSION
  5. TRICOR [Suspect]
     Indication: HYPERLIPIDAEMIA
  6. LISINOPRIL [Concomitant]
     Indication: HYPERTENSION
  7. VITAMIN D [Concomitant]
     Indication: PRODUCT USED FOR UNKNOWN INDICATION

REACTIONS (6)
  - EPIGLOTTIC CARCINOMA [None]
  - GLOSSODYNIA [None]
  - EPISTAXIS [None]
  - DYSPHAGIA [None]
  - WRONG TECHNIQUE IN DRUG USAGE PROCESS [None]
  - TABLET PHYSICAL ISSUE [None]
